FAERS Safety Report 19977887 (Version 1)
Quarter: 2021Q4

REPORT INFORMATION
  Report Type: Spontaneous
  Country: US (occurrence: US)
  Receive Date: 20211020
  Receipt Date: 20211020
  Transmission Date: 20220303
  Serious: No
  Sender: FDA-Public Use
  Company Number: None

PATIENT
  Age: 63 Year
  Sex: Female
  Weight: 126 kg

DRUGS (6)
  1. IBRANCE [Suspect]
     Active Substance: PALBOCICLIB
     Indication: Breast cancer
     Dosage: ?          OTHER FREQUENCY:QD FOR 21/28 DAYS;
     Route: 048
     Dates: start: 20210730
  2. HUMULIN R [Concomitant]
     Active Substance: INSULIN HUMAN
  3. METOPROLOL TARTRATE [Concomitant]
     Active Substance: METOPROLOL TARTRATE
  4. XANAX [Concomitant]
     Active Substance: ALPRAZOLAM
  5. COZAAR [Concomitant]
     Active Substance: LOSARTAN POTASSIUM
  6. FASLODEX [Concomitant]
     Active Substance: FULVESTRANT

REACTIONS (4)
  - Cough [None]
  - Peripheral swelling [None]
  - Arthralgia [None]
  - Abdominal distension [None]

NARRATIVE: CASE EVENT DATE: 20211019
